FAERS Safety Report 21209392 (Version 2)
Quarter: 2022Q3

REPORT INFORMATION
  Report Type: Report from Study
  Country: GR (occurrence: GR)
  Receive Date: 20220813
  Receipt Date: 20220927
  Transmission Date: 20221027
  Serious: Yes (Hospitalization, Other)
  Sender: FDA-Public Use
  Company Number: GR-ABBVIE-22K-066-4499915-00

PATIENT
  Sex: Female
  Weight: 65 kg

DRUGS (3)
  1. CARBIDOPA\LEVODOPA [Suspect]
     Active Substance: CARBIDOPA\LEVODOPA
     Indication: Parkinson^s disease
     Dosage: MORNING DOSE: 15.0ML; CONTINUOUS RATE: 4.0ML/H; EXTRA DOSE: 2.5ML
     Route: 050
     Dates: start: 20191219, end: 20220809
  2. CARBIDOPA\LEVODOPA [Suspect]
     Active Substance: CARBIDOPA\LEVODOPA
     Dosage: MORNING DOSE: 15.0ML; CONTINUOUS RATE: 4.2ML/H; EXTRA DOSE: 2.2ML
     Route: 050
     Dates: start: 20220809
  3. CARBIDOPA\LEVODOPA [Suspect]
     Active Substance: CARBIDOPA\LEVODOPA
     Dosage: MORNING DOSE: 15.0ML; CONTINUOUS RATE: 4.2ML/H; EXTRA DOSE: 2.2ML
     Route: 050

REACTIONS (5)
  - Haematocrit decreased [Recovered/Resolved]
  - Transfusion [Unknown]
  - Musculoskeletal stiffness [Recovered/Resolved]
  - Hyperkinesia [Unknown]
  - Intentional product misuse [Recovered/Resolved]
